FAERS Safety Report 6401698-9 (Version None)
Quarter: 2009Q4

REPORT INFORMATION
  Report Type: 
  Country: None (occurrence: None)
  Receive Date: 20091009
  Receipt Date: 20091007
  Transmission Date: 20100525
  Serious: Yes (Hospitalization)
  Sender: FDA-Public Use
  Company Number: 2009SP026953

PATIENT
  Age: 58 Year
  Sex: Female
  Weight: 49 kg

DRUGS (10)
  1. PEG-INTRON [Suspect]
     Indication: HEPATITIS C
     Dosage: 0.25 ML; QW; SC
     Route: 058
     Dates: start: 20070713
  2. LOXONIN [Concomitant]
  3. MUCOSTA [Concomitant]
  4. METHYCOBAL [Concomitant]
  5. URSO 250 [Concomitant]
  6. GASTER D [Concomitant]
  7. VOLTAREN [Concomitant]
  8. SOLANAX [Concomitant]
  9. CHOREITOU [Concomitant]
  10. ADOFEED [Concomitant]

REACTIONS (2)
  - FEELING ABNORMAL [None]
  - PYELONEPHRITIS ACUTE [None]
